FAERS Safety Report 10682819 (Version 1)
Quarter: 2014Q4

REPORT INFORMATION
  Report Type: Spontaneous
  Country: RU (occurrence: RU)
  Receive Date: 20141230
  Receipt Date: 20141230
  Transmission Date: 20150529
  Serious: Yes (Other)
  Sender: FDA-Public Use
  Company Number: RU-JNJFOC-20141212810

PATIENT
  Age: 12 Year

DRUGS (1)
  1. INVEGA [Suspect]
     Active Substance: PALIPERIDONE
     Indication: UNEVALUABLE EVENT
     Route: 048

REACTIONS (2)
  - Brain oedema [Unknown]
  - Neuroleptic malignant syndrome [Unknown]
